FAERS Safety Report 9200326 (Version 1)
Quarter: 2013Q1

REPORT INFORMATION
  Report Type: Spontaneous
  Country: US (occurrence: GB)
  Receive Date: 20130329
  Receipt Date: 20130329
  Transmission Date: 20140127
  Serious: Yes (Hospitalization)
  Sender: FDA-Public Use
  Company Number: GB-PFIZER INC-2008012297JJ

PATIENT
  Age: 46 Year
  Sex: Male

DRUGS (4)
  1. IBUPROFEN (UNSPECIFIED) [Suspect]
     Indication: PRODUCT USED FOR UNKNOWN INDICATION
     Route: 065
  2. EFEXOR [Suspect]
     Indication: PRODUCT USED FOR UNKNOWN INDICATION
     Route: 048
  3. PANADEINE CO [Concomitant]
     Route: 048
  4. CO-CODAMOL [Concomitant]
     Route: 048

REACTIONS (2)
  - Erythrodermic psoriasis [Not Recovered/Not Resolved]
  - Photosensitivity reaction [Not Recovered/Not Resolved]
